FAERS Safety Report 8271134-9 (Version None)
Quarter: 2012Q2

REPORT INFORMATION
  Report Type: 
  Country: None (occurrence: None)
  Receive Date: 20120410
  Receipt Date: 20120406
  Transmission Date: 20120825
  Serious: Yes (Other)
  Sender: FDA-Public Use
  Company Number: US-PFIZER INC-2011233263

PATIENT
  Sex: Female

DRUGS (2)
  1. COUMADIN [Concomitant]
     Dosage: UNK
  2. IBUPROFEN (ADVIL) [Suspect]
     Dosage: UNK

REACTIONS (6)
  - DRUG HYPERSENSITIVITY [None]
  - BURNING SENSATION [None]
  - SWELLING [None]
  - ANAPHYLACTIC SHOCK [None]
  - PRURITUS [None]
  - LIP SWELLING [None]
